FAERS Safety Report 4606758-0 (Version None)
Quarter: 2005Q1

REPORT INFORMATION
  Report Type: 
  Country: None (occurrence: None)
  Receive Date: 20050310
  Receipt Date: 20050301
  Transmission Date: 20050727
  Serious: Yes (Death)
  Sender: FDA-Public Use
  Company Number: 200503IM000047

PATIENT
  Age: 64 Year
  Sex: Female

DRUGS (1)
  1. ACTIMMUNE [Suspect]
     Indication: INTERSTITIAL LUNG DISEASE
     Dosage: 200 UG, TIW, SUBCUTANEOUS
     Route: 058
     Dates: start: 20030611, end: 20050104

REACTIONS (1)
  - RESPIRATORY FAILURE [None]
